FAERS Safety Report 5087451-X (Version None)
Quarter: 2006Q3

REPORT INFORMATION
  Report Type: 
  Country: None (occurrence: None)
  Receive Date: 20060821
  Receipt Date: 20060808
  Transmission Date: 20061208
  Serious: Yes (Other)
  Sender: FDA-Public Use
  Company Number: 02100-JPN-06-0361

PATIENT
  Age: 32 Year
  Sex: Female

DRUGS (1)
  1. CILOSTAZOL [Suspect]
     Indication: LEUKOENCEPHALOPATHY
     Dosage: 200 MG ORAL
     Route: 048
     Dates: start: 20060731, end: 20060803

REACTIONS (3)
  - DYSSTASIA [None]
  - MUSCULAR WEAKNESS [None]
  - MYALGIA [None]
